FAERS Safety Report 25471890 (Version 1)
Quarter: 2025Q2

REPORT INFORMATION
  Report Type: Spontaneous
  Country: CN (occurrence: CN)
  Receive Date: 20250624
  Receipt Date: 20250624
  Transmission Date: 20250717
  Serious: Yes (Other)
  Sender: BAXTER
  Company Number: None

PATIENT
  Age: 63 Year
  Sex: Female
  Weight: 54 kg

DRUGS (8)
  1. CYCLOPHOSPHAMIDE [Suspect]
     Active Substance: CYCLOPHOSPHAMIDE
     Indication: Philadelphia positive acute lymphocytic leukaemia
     Dosage: 1.200000G,QD
     Route: 041
     Dates: start: 20250520, end: 20250520
  2. SODIUM CHLORIDE [Suspect]
     Active Substance: SODIUM CHLORIDE
     Dosage: NS 250ML + CYCLOPHOSPHAMIDE FOR INJECTION 1.2G + MESNA INJECTION 0.8G
     Route: 041
     Dates: start: 20250520, end: 20250520
  3. SODIUM CHLORIDE [Suspect]
     Active Substance: SODIUM CHLORIDE
     Dosage: VINORELBINE TARTRATE INJECTION 30MG + NS20ML INTRAVENOUS PUSH QD
     Route: 042
     Dates: start: 20250520, end: 20250520
  4. SODIUM CHLORIDE [Suspect]
     Active Substance: SODIUM CHLORIDE
     Dosage: NS 100ML + IDARUBICIN HYDROCHLORIDE FOR INJECTION 10MG QD
     Route: 041
     Dates: start: 20250520, end: 20250522
  5. IDARUBICIN HYDROCHLORIDE [Suspect]
     Active Substance: IDARUBICIN HYDROCHLORIDE
     Indication: Philadelphia positive acute lymphocytic leukaemia
     Dosage: 10.000000 MG, QD
     Route: 041
     Dates: start: 20250520, end: 20250522
  6. FLUMATINIB MESYLATE [Suspect]
     Active Substance: FLUMATINIB MESYLATE
     Indication: Philadelphia positive acute lymphocytic leukaemia
     Dosage: 0. 600000 G ONCE DAILY
     Route: 048
     Dates: start: 20250522, end: 20250529
  7. VINORELBINE TARTRATE [Suspect]
     Active Substance: VINORELBINE TARTRATE
     Indication: Philadelphia positive acute lymphocytic leukaemia
     Dosage: 30.000000 MG, QD
     Route: 042
     Dates: start: 20250520, end: 20250520
  8. MESNA [Suspect]
     Active Substance: MESNA
     Indication: Urinary tract disorder prophylaxis
     Dosage: 0.800000 G ONCE DAILY
     Route: 041
     Dates: start: 20250520, end: 20250520

REACTIONS (2)
  - Myelosuppression [Recovering/Resolving]
  - Granulocyte count decreased [Recovering/Resolving]

NARRATIVE: CASE EVENT DATE: 20250529
